FAERS Safety Report 9122553 (Version 1)
Quarter: 2013Q1

REPORT INFORMATION
  Report Type: Spontaneous
  Country: US (occurrence: None)
  Receive Date: 20130222
  Receipt Date: 20130222
  Transmission Date: 20140127
  Serious: Yes (Death, Other)
  Sender: FDA-Public Use
  Company Number: 2013US-004580

PATIENT
  Age: 55 Year
  Sex: Male
  Weight: 90.7 kg

DRUGS (13)
  1. OMONTYS (PEGINESATIDE) SOLUTION FOR INJECTION [Suspect]
     Indication: NEPHROGENIC ANAEMIA
     Route: 042
     Dates: start: 20130211, end: 20130211
  2. ZEMPLAR (PARICALCITOL) [Concomitant]
  3. NEXIUM (ESOMEPRAZOLE MAGNESIUM) [Concomitant]
  4. FUROSEMIDE (FUROSEMIDE) [Concomitant]
  5. TRAMADOL (TRAMADOL) [Concomitant]
  6. CARVEDILOL (CARVEDILOL) [Concomitant]
  7. NORCO (HYDROCODONE BITARTRATE, PARACETAMOL) [Concomitant]
  8. ENBREL (ETANERCEPT) [Concomitant]
  9. VENOFER [Concomitant]
  10. LOSARTAN (LOSARTAN) [Concomitant]
  11. VITAMIN D (ERGOCALCIFEROL) [Concomitant]
  12. FOLIC ACID (FOLIC ACID) [Concomitant]
  13. HEPARIN (HEPARIN) [Concomitant]

REACTIONS (7)
  - Cardio-respiratory arrest [None]
  - Unresponsive to stimuli [None]
  - Cyanosis [None]
  - Dyspnoea [None]
  - Blood pressure increased [None]
  - Tremor [None]
  - Malaise [None]
